FAERS Safety Report 9491795 (Version 1)
Quarter: 2013Q3

REPORT INFORMATION
  Report Type: Spontaneous
  Country: US (occurrence: US)
  Receive Date: 20130830
  Receipt Date: 20130830
  Transmission Date: 20140515
  Serious: No
  Sender: FDA-Public Use
  Company Number: US-BAYER-2013-104835

PATIENT
  Age: 47 Year
  Sex: Female

DRUGS (2)
  1. GADAVIST [Suspect]
     Indication: NUCLEAR MAGNETIC RESONANCE IMAGING ABDOMINAL
     Dosage: 9 ML, ONCE
     Route: 042
     Dates: start: 20130823, end: 20130823
  2. GADAVIST [Suspect]
     Indication: RENAL NEOPLASM

REACTIONS (4)
  - Asthma [Recovered/Resolved]
  - Oropharyngeal discomfort [Recovered/Resolved]
  - Anxiety [Recovered/Resolved]
  - Vomiting [Recovered/Resolved]
